FAERS Safety Report 19085034 (Version 3)
Quarter: 2022Q4

REPORT INFORMATION
  Report Type: Report from Study
  Country: CA (occurrence: CA)
  Receive Date: 20210401
  Receipt Date: 20221017
  Transmission Date: 20230113
  Serious: Yes (Other)
  Sender: FDA-Public Use
  Company Number: CA-BAUSCH-BL-2021-010867

PATIENT
  Age: 63 Year
  Sex: Male

DRUGS (4)
  1. SILIQ [Suspect]
     Active Substance: BRODALUMAB
     Indication: Psoriasis
     Dosage: 210MG/ 1.5 ML, WEEK 0, 1, 2
     Route: 058
     Dates: start: 20201110, end: 202011
  2. SILIQ [Suspect]
     Active Substance: BRODALUMAB
     Dosage: 210MG/ 1.5 ML
     Route: 058
     Dates: start: 202012, end: 20210316
  3. SILIQ [Suspect]
     Active Substance: BRODALUMAB
     Dosage: 210MG/ 1.5 ML, Q2WEEKS
     Route: 058
  4. COUMADIN [Suspect]
     Active Substance: WARFARIN SODIUM
     Indication: Thrombosis
     Route: 065

REACTIONS (8)
  - Cholelithiasis [Unknown]
  - Platelet count decreased [Not Recovered/Not Resolved]
  - Escherichia infection [Unknown]
  - Pyrexia [Unknown]
  - International normalised ratio increased [Unknown]
  - Antithrombin III abnormal [Not Recovered/Not Resolved]
  - COVID-19 [Unknown]
  - Intentional product use issue [Unknown]

NARRATIVE: CASE EVENT DATE: 20210301
